FAERS Safety Report 7057628-2 (Version None)
Quarter: 2010Q4

REPORT INFORMATION
  Report Type: 
  Country: None (occurrence: None)
  Receive Date: 20101022
  Receipt Date: 20101015
  Transmission Date: 20110411
  Serious: Yes (Other)
  Sender: FDA-Public Use
  Company Number: JP-PFIZER INC-2010131306

PATIENT
  Sex: Male

DRUGS (1)
  1. HALCION [Suspect]
     Dosage: UNK
     Route: 048
     Dates: end: 20101007

REACTIONS (2)
  - HEADACHE [None]
  - HEPATIC FUNCTION ABNORMAL [None]
